FAERS Safety Report 4989212-6 (Version None)
Quarter: 2006Q2

REPORT INFORMATION
  Report Type: 
  Country: None (occurrence: None)
  Receive Date: 20060425
  Receipt Date: 20060410
  Transmission Date: 20061013
  Serious: Yes (Hospitalization, Other)
  Sender: FDA-Public Use
  Company Number: 2006050078

PATIENT
  Sex: Male

DRUGS (2)
  1. CELEBREX [Suspect]
     Indication: ILL-DEFINED DISORDER
  2. REBIF [Suspect]
     Indication: ILL-DEFINED DISORDER
     Dates: end: 20051101

REACTIONS (4)
  - CATARACT [None]
  - ECONOMIC PROBLEM [None]
  - MULTIPLE SCLEROSIS [None]
  - UNEVALUABLE EVENT [None]
